FAERS Safety Report 5407288-9 (Version None)
Quarter: 2007Q3

REPORT INFORMATION
  Report Type: 
  Country: None (occurrence: None)
  Receive Date: 20070807
  Receipt Date: 20070801
  Transmission Date: 20080115
  Serious: Yes (Hospitalization)
  Sender: FDA-Public Use
  Company Number: US-ELI_LILLY_AND_COMPANY-US200708000142

PATIENT
  Age: 31 Year
  Sex: Male
  Weight: 115.65 kg

DRUGS (4)
  1. ZYPREXA [Suspect]
     Indication: AGITATION
     Dosage: 20 MG, 2/D
  2. ZYPREXA [Suspect]
     Dosage: 10 MG, DAILY (1/D)
  3. ZYPREXA [Suspect]
     Dosage: 2.5 MG, UNK
  4. HALDOL [Concomitant]
     Indication: DEPRESSION
     Dosage: 20 MG, 2/D

REACTIONS (7)
  - DIZZINESS [None]
  - DYSARTHRIA [None]
  - MUSCULOSKELETAL STIFFNESS [None]
  - OVERDOSE [None]
  - PYROMANIA [None]
  - RESTLESSNESS [None]
  - SOMNOLENCE [None]
